FAERS Safety Report 4447576-6 (Version None)
Quarter: 2004Q3

REPORT INFORMATION
  Report Type: 
  Country: None (occurrence: None)
  Receive Date: 20040823
  Receipt Date: 20040616
  Transmission Date: 20050211
  Serious: No
  Sender: FDA-Public Use
  Company Number: PHEH2004US06557

PATIENT
  Age: 23 Year
  Sex: Female

DRUGS (2)
  1. ZELNORM [Suspect]
     Indication: IRRITABLE BOWEL SYNDROME
     Dosage: 6 MG, BID, ORAL
     Route: 048
     Dates: start: 20040611, end: 20040613
  2. ALBUTEROL [Concomitant]

REACTIONS (4)
  - ABDOMINAL PAIN UPPER [None]
  - MIGRAINE [None]
  - MOOD SWINGS [None]
  - NAUSEA [None]
